FAERS Safety Report 9863545 (Version 1)
Quarter: 2014Q1

REPORT INFORMATION
  Report Type: Spontaneous
  Country: US (occurrence: US)
  Receive Date: 20140203
  Receipt Date: 20140203
  Transmission Date: 20141002
  Serious: Yes (Hospitalization)
  Sender: FDA-Public Use
  Company Number: US-MYLANLABS-2014S1001610

PATIENT
  Age: 69 Year
  Sex: Male

DRUGS (8)
  1. TACROLIMUS [Suspect]
     Indication: ACCIDENTAL OVERDOSE
     Route: 048
  2. TACROLIMUS [Suspect]
     Indication: IMMUNOSUPPRESSANT DRUG THERAPY
     Route: 048
  3. TACROLIMUS [Suspect]
     Indication: ACCIDENTAL OVERDOSE
     Route: 048
  4. TACROLIMUS [Suspect]
     Indication: IMMUNOSUPPRESSANT DRUG THERAPY
     Route: 048
  5. METHYLPREDNISOLONE [Concomitant]
     Indication: IMMUNOSUPPRESSANT DRUG THERAPY
     Dosage: 500MG, THEN 250MG
     Route: 042
  6. METHYLPREDNISOLONE [Concomitant]
     Indication: IMMUNOSUPPRESSANT DRUG THERAPY
     Dosage: 250MG
     Route: 042
  7. PREDNISONE [Concomitant]
     Indication: IMMUNOSUPPRESSANT DRUG THERAPY
     Dosage: THEN TAPERED BY APPROX 10MG EVERY WEEK
     Route: 048
  8. MYCOPHENOLIC ACID [Concomitant]
     Indication: IMMUNOSUPPRESSANT DRUG THERAPY
     Route: 065

REACTIONS (3)
  - Accidental overdose [Recovering/Resolving]
  - Encephalopathy [Recovered/Resolved]
  - Demyelinating polyneuropathy [Recovering/Resolving]
